FAERS Safety Report 9287681 (Version 1)
Quarter: 2013Q2

REPORT INFORMATION
  Report Type: Spontaneous
  Country: US (occurrence: US)
  Receive Date: 20130514
  Receipt Date: 20130514
  Transmission Date: 20140414
  Serious: Yes (Other)
  Sender: FDA-Public Use
  Company Number: US-JNJFOC-20130417641

PATIENT
  Age: 75 Year
  Sex: Female
  Weight: 44.45 kg

DRUGS (10)
  1. XARELTO [Suspect]
     Indication: THROMBOSIS
     Route: 048
     Dates: start: 20130430
  2. XARELTO [Suspect]
     Indication: THROMBOSIS
     Route: 048
     Dates: start: 20130123, end: 20130429
  3. PANCRELIPASE [Concomitant]
     Indication: MALABSORPTION
     Route: 065
  4. TINCTURE OF OPIUM [Concomitant]
     Indication: DIARRHOEA
     Dosage: 3/10TH OF A MG
     Route: 065
  5. LOMOTIL [Concomitant]
     Indication: DIARRHOEA
     Route: 048
  6. PERIACTIN [Concomitant]
     Indication: NEOPLASM MALIGNANT
     Route: 065
  7. VITAMIN  D [Concomitant]
     Indication: VITAMIN D DEFICIENCY
     Route: 065
  8. OCTREOTIDE [Concomitant]
     Indication: NEOPLASM MALIGNANT
     Dosage: MORNING AND EVENING
     Route: 058
  9. OCTREOTIDE [Concomitant]
     Indication: NEOPLASM MALIGNANT
     Dosage: 150 MICROGRAM, MORNING AND EVENING
     Route: 065
  10. FERRITIN [Concomitant]
     Indication: BLOOD IRON DECREASED
     Route: 042

REACTIONS (3)
  - Epistaxis [Recovered/Resolved]
  - Haemoglobin decreased [Not Recovered/Not Resolved]
  - Vitamin D deficiency [Unknown]
